FAERS Safety Report 17151287 (Version 1)
Quarter: 2019Q4

REPORT INFORMATION
  Report Type: Spontaneous
  Country: US (occurrence: US)
  Receive Date: 20191212
  Receipt Date: 20191212
  Transmission Date: 20200122
  Serious: Yes (Disabling)
  Sender: FDA-Public Use
  Company Number: None

PATIENT
  Age: 65 Year
  Sex: Male
  Weight: 84.15 kg

DRUGS (5)
  1. CARVDILOL TABS TWICE A DAY [Concomitant]
  2. CLOPIDOGREL BISULFATE. [Suspect]
     Active Substance: CLOPIDOGREL BISULFATE
     Indication: ANTICOAGULANT THERAPY
     Dosage: ?          QUANTITY:90 TABLET(S);?
     Route: 048
     Dates: start: 20190828, end: 20190929
  3. PLAVIX [Concomitant]
     Active Substance: CLOPIDOGREL BISULFATE
  4. ASPIRIN 81 MG [Concomitant]
     Active Substance: ASPIRIN
  5. NITRO (IF NEEDED) [Concomitant]

REACTIONS (10)
  - Back pain [None]
  - Gastroenteritis viral [None]
  - Night sweats [None]
  - Product substitution issue [None]
  - Abdominal pain upper [None]
  - Hypertension [None]
  - Diarrhoea [None]
  - Pyrexia [None]
  - Angina pectoris [None]
  - Product odour abnormal [None]

NARRATIVE: CASE EVENT DATE: 20190923
